FAERS Safety Report 5085680-2 (Version None)
Quarter: 2006Q3

REPORT INFORMATION
  Report Type: 
  Country: None (occurrence: None)
  Receive Date: 20060822
  Receipt Date: 20060818
  Transmission Date: 20061208
  Serious: Yes (Other)
  Sender: FDA-Public Use
  Company Number: US-JNJFOC-20060804200

PATIENT
  Sex: Male
  Weight: 77.11 kg

DRUGS (4)
  1. MOTRIN IB [Suspect]
  2. MOTRIN IB [Suspect]
     Indication: PAIN
  3. LIPITOR [Concomitant]
     Indication: BLOOD CHOLESTEROL INCREASED
  4. ACETYLSALICYLIC ACID SRT [Concomitant]
     Indication: CEREBROVASCULAR ACCIDENT PROPHYLAXIS

REACTIONS (2)
  - HYPERSENSITIVITY [None]
  - REACTION TO DRUG EXCIPIENTS [None]
